FAERS Safety Report 13374208 (Version 1)
Quarter: 2017Q1

REPORT INFORMATION
  Report Type: Spontaneous
  Country: US (occurrence: US)
  Receive Date: 20170327
  Receipt Date: 20170327
  Transmission Date: 20170429
  Serious: Yes (Hospitalization)
  Sender: FDA-Public Use
  Company Number: None

PATIENT
  Age: 71 Year
  Sex: Male
  Weight: 107.23 kg

DRUGS (1)
  1. AZATHIOPRINE. [Suspect]
     Active Substance: AZATHIOPRINE
     Indication: MYASTHENIA GRAVIS
     Dosage: MG
     Dates: start: 20170223, end: 20170307

REACTIONS (4)
  - Pyrexia [None]
  - Muscular weakness [None]
  - Myalgia [None]
  - Hepatic enzyme increased [None]

NARRATIVE: CASE EVENT DATE: 20170314
